FAERS Safety Report 7361395-2 (Version None)
Quarter: 2011Q1

REPORT INFORMATION
  Report Type: 
  Country: None (occurrence: None)
  Receive Date: 20110318
  Receipt Date: 20110311
  Transmission Date: 20110831
  Serious: Yes (Death, Other)
  Sender: FDA-Public Use
  Company Number: US-ELI_LILLY_AND_COMPANY-US201103004397

PATIENT
  Sex: Female

DRUGS (1)
  1. FORTEO [Suspect]
     Dosage: 20 UG, DAILY (1/D)
     Route: 058

REACTIONS (5)
  - HEPATIC NEOPLASM MALIGNANT [None]
  - LOSS OF CONSCIOUSNESS [None]
  - ONCOLOGIC COMPLICATION [None]
  - COMA [None]
  - HEPATIC MASS [None]
